FAERS Safety Report 6607966-X (Version None)
Quarter: 2010Q1

REPORT INFORMATION
  Report Type: 
  Country: None (occurrence: None)
  Receive Date: 20100301
  Receipt Date: 20100222
  Transmission Date: 20100710
  Serious: Yes (Other)
  Sender: FDA-Public Use
  Company Number: FR-KINGPHARMUSA00001-K201000193

PATIENT
  Sex: Male

DRUGS (10)
  1. ALTACE [Suspect]
     Dosage: 1.25 MG, QD
     Route: 048
     Dates: start: 20071128, end: 20100203
  2. ARANESP [Suspect]
     Indication: RENAL FAILURE CHRONIC
     Dosage: UNK
     Route: 058
     Dates: end: 20100201
  3. 5 FU [Concomitant]
  4. ATORVASTATIN CALCIUM [Concomitant]
     Dosage: UNK
     Dates: start: 20040225
  5. CYCLOPHOSPHAMIDE [Concomitant]
     Dosage: UNK
     Dates: start: 20080124, end: 20080515
  6. DEXAMETHASONE [Concomitant]
  7. RANITIDINE [Concomitant]
     Dosage: UNK
     Dates: start: 20091019
  8. THALIDOMIDE [Concomitant]
     Dosage: UNK
     Dates: start: 20080124, end: 20080515
  9. WARFARIN [Concomitant]
     Dosage: UNK
     Dates: start: 20080124, end: 20090907
  10. MELPHALAN [Concomitant]

REACTIONS (3)
  - BLOOD PRODUCT TRANSFUSION DEPENDENT [None]
  - BONE MARROW FAILURE [None]
  - PANCYTOPENIA [None]
